FAERS Safety Report 8768722 (Version 2)
Quarter: 2012Q4

REPORT INFORMATION
  Report Type: 
  Country: US (occurrence: US)
  Receive Date: 20120906
  Receipt Date: 20121001
  Transmission Date: 20130627
  Serious: Yes (Other)
  Sender: FDA-Public Use
  Company Number: US-TEVA-356876USA

PATIENT
  Sex: Female
  Weight: 180 kg

DRUGS (7)
  1. PROPRANOLOL [Suspect]
     Indication: HYPERTENSION
     Dosage: 20 mg in the morning, 40 mg in the afternoon and 20 mg in the evening
     Route: 048
     Dates: start: 201208
  2. PROPRANOLOL [Suspect]
     Indication: HYPERTENSION
     Dosage: 60 Milligram Daily;
     Route: 048
     Dates: end: 2007
  3. PROPANOLOL [Suspect]
     Dates: start: 2007, end: 201208
  4. CITALOPRAM [Suspect]
     Indication: ANXIETY
  5. POTASSIUM [Suspect]
  6. ESTROGENS CONJUGATED [Concomitant]
  7. LEVOTHYROXINE SODIUM [Concomitant]
     Indication: AUTOIMMUNE THYROIDITIS

REACTIONS (12)
  - Polyp [Unknown]
  - Anxiety [Unknown]
  - Gastrooesophageal reflux disease [Unknown]
  - Weight increased [Unknown]
  - Oral discomfort [Unknown]
  - Arthralgia [Unknown]
  - Pain in extremity [Unknown]
  - Musculoskeletal discomfort [Unknown]
  - Abdominal distension [Unknown]
  - Insomnia [Unknown]
  - Abdominal discomfort [Unknown]
  - Dysgeusia [Unknown]
